FAERS Safety Report 10215600 (Version 2)
Quarter: 2014Q2

REPORT INFORMATION
  Report Type: Spontaneous
  Country: GB (occurrence: GB)
  Receive Date: 20140604
  Receipt Date: 20140613
  Transmission Date: 20141212
  Serious: Yes (Hospitalization)
  Sender: FDA-Public Use
  Company Number: GB-JNJFOC-20140519057

PATIENT
  Age: 91 Year
  Sex: Female

DRUGS (12)
  1. XARELTO [Suspect]
     Indication: CEREBROVASCULAR ACCIDENT PROPHYLAXIS
     Route: 048
     Dates: start: 20140504, end: 20140514
  2. XARELTO [Suspect]
     Indication: ATRIAL FIBRILLATION
     Route: 048
     Dates: start: 20140504, end: 20140514
  3. DICLOFENAC [Suspect]
     Indication: ARTHRALGIA
     Route: 048
     Dates: end: 20140514
  4. BISOPROLOL [Concomitant]
     Indication: ATRIAL FIBRILLATION
     Route: 065
     Dates: start: 20140502
  5. CETIRIZINE [Concomitant]
     Route: 065
  6. CLOPIDOGREL [Concomitant]
     Route: 065
     Dates: end: 20140502
  7. CODEINE [Concomitant]
     Route: 065
  8. DOXAZOSIN [Concomitant]
     Route: 065
     Dates: end: 20140502
  9. GAVISCON ADVANCE [Concomitant]
     Indication: DYSPEPSIA
     Route: 065
  10. PARACETAMOL [Concomitant]
     Route: 065
  11. POLYVINYL ALCOHOL [Concomitant]
     Route: 065
  12. RANITIDINE [Concomitant]
     Route: 065

REACTIONS (3)
  - Faeces discoloured [Unknown]
  - Gastritis [Unknown]
  - Hiatus hernia [Unknown]
